FAERS Safety Report 12397871 (Version 1)
Quarter: 2016Q2

REPORT INFORMATION
  Report Type: Spontaneous
  Country: US (occurrence: US)
  Receive Date: 20160524
  Receipt Date: 20160524
  Transmission Date: 20160815
  Serious: No
  Sender: FDA-Public Use
  Company Number: US-VIIV HEALTHCARE LIMITED-US2016072689

PATIENT
  Sex: Male

DRUGS (1)
  1. TIVICAY [Suspect]
     Active Substance: DOLUTEGRAVIR SODIUM
     Indication: PRODUCT USED FOR UNKNOWN INDICATION
     Dosage: UNK, U

REACTIONS (6)
  - Ill-defined disorder [Unknown]
  - Nervous system disorder [Unknown]
  - Drug ineffective for unapproved indication [Unknown]
  - Muscular weakness [Unknown]
  - Vein disorder [Unknown]
  - Limb discomfort [Unknown]
